FAERS Safety Report 11588721 (Version 1)
Quarter: 2015Q4

REPORT INFORMATION
  Report Type: Spontaneous
  Country: IT (occurrence: IT)
  Receive Date: 20151002
  Receipt Date: 20151002
  Transmission Date: 20160304
  Serious: Yes (Other)
  Sender: FDA-Public Use
  Company Number: IT-ACTAVIS-2015-20966

PATIENT
  Age: 46 Year
  Sex: Female

DRUGS (1)
  1. OXALIPLATINO ACTAVIS [Suspect]
     Active Substance: OXALIPLATIN
     Indication: RECTAL CANCER
     Dosage: UNK
     Route: 042
     Dates: start: 20150902, end: 20150902

REACTIONS (3)
  - Pruritus [Recovered/Resolved]
  - Oral discomfort [Recovered/Resolved]
  - Erythema [Recovered/Resolved]

NARRATIVE: CASE EVENT DATE: 20150904
